FAERS Safety Report 8205595-8 (Version None)
Quarter: 2012Q1

REPORT INFORMATION
  Report Type: 
  Country: None (occurrence: None)
  Receive Date: 20120313
  Receipt Date: 20120308
  Transmission Date: 20120608
  Serious: Yes (Death, Hospitalization)
  Sender: FDA-Public Use
  Company Number: US-ACTELION-A-NJ2011-57957

PATIENT

DRUGS (7)
  1. COUMADIN [Concomitant]
  2. DIGOXIN [Concomitant]
  3. SILDENAFIL [Concomitant]
  4. FUROSEMIDE [Concomitant]
  5. ALDACTONE [Concomitant]
  6. TRACLEER [Suspect]
     Indication: PULMONARY ARTERIAL HYPERTENSION
     Dosage: 125 MG, BID
     Route: 048
     Dates: start: 20090528, end: 20111206
  7. EPOPROSTENOL SODIUM [Suspect]
     Indication: PULMONARY ARTERIAL HYPERTENSION
     Dosage: 58 NG/KG, PER MIN
     Route: 041
     Dates: start: 20100604, end: 20120306

REACTIONS (9)
  - SYNCOPE [None]
  - PRESYNCOPE [None]
  - THROMBOSIS IN DEVICE [None]
  - CARDIO-RESPIRATORY ARREST [None]
  - VENTRICULAR TACHYCARDIA [None]
  - CONCOMITANT DISEASE AGGRAVATED [None]
  - UNRESPONSIVE TO STIMULI [None]
  - PULSE ABSENT [None]
  - BRADYCARDIA [None]
